FAERS Safety Report 16841552 (Version 1)
Quarter: 2019Q3

REPORT INFORMATION
  Report Type: Spontaneous
  Country: RU (occurrence: RU)
  Receive Date: 20190923
  Receipt Date: 20190923
  Transmission Date: 20191005
  Serious: Yes (Other)
  Sender: FDA-Public Use
  Company Number: RU-ASTRAZENECA-2019SF30910

PATIENT
  Sex: Female

DRUGS (12)
  1. OMEPRAZOLE. [Suspect]
     Active Substance: OMEPRAZOLE
     Route: 048
  2. FILGRASTIM [Suspect]
     Active Substance: FILGRASTIM
     Route: 065
  3. VINCRISTINE [Suspect]
     Active Substance: VINCRISTINE
     Route: 065
  4. PREDNISONE. [Suspect]
     Active Substance: PREDNISONE
     Route: 065
  5. AMPICILLIN/SULBACTAM [Suspect]
     Active Substance: AMPICILLIN SODIUM\SULBACTAM SODIUM
     Route: 065
  6. DEXAMETHASONE. [Suspect]
     Active Substance: DEXAMETHASONE
     Route: 065
  7. RITUXIMAB. [Suspect]
     Active Substance: RITUXIMAB
     Indication: DIFFUSE LARGE B-CELL LYMPHOMA
     Route: 065
  8. NADROPARIN [Suspect]
     Active Substance: NADROPARIN
     Route: 065
  9. DOXORUBICIN [Suspect]
     Active Substance: DOXORUBICIN
     Route: 065
  10. ACETAMINOPHEN. [Suspect]
     Active Substance: ACETAMINOPHEN
     Route: 065
  11. CHLOROPYRAMINE [Suspect]
     Active Substance: CHLOROPYRAMINE
     Route: 065
  12. CYCLOPHOSPHAMIDE. [Suspect]
     Active Substance: CYCLOPHOSPHAMIDE
     Route: 065

REACTIONS (2)
  - Exposure during pregnancy [Unknown]
  - Stillbirth [Unknown]
